FAERS Safety Report 15249226 (Version 1)
Quarter: 2018Q3

REPORT INFORMATION
  Report Type: Spontaneous
  Country: US (occurrence: US)
  Receive Date: 20180807
  Receipt Date: 20180807
  Transmission Date: 20181010
  Serious: No
  Sender: FDA-Public Use
  Company Number: US-PERRIGO-17US025395

PATIENT
  Age: 83 Year
  Sex: Female
  Weight: 72.56 kg

DRUGS (4)
  1. LORATADINE. [Suspect]
     Active Substance: LORATADINE
     Indication: ECZEMA
     Dosage: 10 MG, BID
     Route: 048
     Dates: start: 2010, end: 201703
  2. LORATADINE. [Suspect]
     Active Substance: LORATADINE
     Dosage: 10 MG, QD
     Route: 048
     Dates: start: 20170723
  3. LORATADINE. [Suspect]
     Active Substance: LORATADINE
     Indication: PERENNIAL ALLERGY
     Dosage: 10 MG, QD
     Route: 048
     Dates: start: 201703, end: 20170722
  4. LEVOTHYROXINE. [Concomitant]
     Active Substance: LEVOTHYROXINE
     Indication: HYPOTHYROIDISM
     Dosage: UNK
     Route: 065

REACTIONS (3)
  - Inappropriate schedule of drug administration [Recovered/Resolved]
  - Off label use [Unknown]
  - Expired product administered [Recovered/Resolved]

NARRATIVE: CASE EVENT DATE: 2010
